FAERS Safety Report 12864738 (Version 2)
Quarter: 2017Q1

REPORT INFORMATION
  Report Type: Report from Study
  Country: PL (occurrence: PL)
  Receive Date: 20161020
  Receipt Date: 20170201
  Transmission Date: 20170428
  Serious: Yes (Other)
  Sender: FDA-Public Use
  Company Number: PHHY2015PL017699

PATIENT
  Age: 35 Year
  Sex: Female
  Weight: 44.5 kg

DRUGS (4)
  1. AFINITOR [Suspect]
     Active Substance: EVEROLIMUS
     Indication: PANCREATIC NEUROENDOCRINE TUMOUR
     Dosage: 10 MG, QD
     Route: 048
     Dates: start: 20150113
  2. VITAMIN B12 [Concomitant]
     Active Substance: CYANOCOBALAMIN
     Indication: PRODUCT USED FOR UNKNOWN INDICATION
     Dosage: 100 MG, QMO
     Route: 030
  3. KREON [Concomitant]
     Active Substance: PANCRELIPASE
     Indication: PRODUCT USED FOR UNKNOWN INDICATION
     Dosage: 3 OT, UNK
     Route: 048
  4. SANDOSTATIN LAR DEPOT [Suspect]
     Active Substance: OCTREOTIDE ACETATE
     Indication: PANCREATIC NEUROENDOCRINE TUMOUR
     Dosage: 30 MG, QMO (EVERY 28 DAY)
     Route: 030
     Dates: start: 201202

REACTIONS (28)
  - Weight increased [Unknown]
  - Oral mucosal erythema [Recovered/Resolved]
  - Headache [Recovered/Resolved]
  - Fatigue [Recovered/Resolved]
  - Pruritus [Unknown]
  - Malignant neoplasm progression [Unknown]
  - Urinary tract infection [Recovered/Resolved]
  - Gingival pain [Recovered/Resolved]
  - Amenorrhoea [Recovering/Resolving]
  - Pyrexia [Recovered/Resolved]
  - Increased appetite [Unknown]
  - Aphthous ulcer [Recovered/Resolved]
  - Rash [Unknown]
  - Asthenia [Recovered/Resolved]
  - Pancreatic neoplasm [Unknown]
  - Gingival bleeding [Recovered/Resolved]
  - Dry mouth [Not Recovered/Not Resolved]
  - Oral mucosal hypertrophy [Recovering/Resolving]
  - Feeling cold [Unknown]
  - Dry skin [Recovered/Resolved]
  - Nausea [Recovered/Resolved]
  - Pyrexia [Recovered/Resolved]
  - Vomiting [Recovered/Resolved]
  - Abdominal pain upper [Recovering/Resolving]
  - Menstruation irregular [Unknown]
  - Urticaria [Unknown]
  - Epistaxis [Recovered/Resolved]
  - Asthenia [Recovered/Resolved]

NARRATIVE: CASE EVENT DATE: 20150212
